FAERS Safety Report 7534948-6 (Version None)
Quarter: 2011Q2

REPORT INFORMATION
  Report Type: 
  Country: None (occurrence: None)
  Receive Date: 20110609
  Receipt Date: 20090112
  Transmission Date: 20111010
  Serious: Yes (Other)
  Sender: FDA-Public Use
  Company Number: PHHY2008IE29364

PATIENT
  Sex: Female

DRUGS (8)
  1. EFFEXOR XR [Concomitant]
     Dosage: 225 MG, QD
     Route: 048
  2. COMBIVENT [Concomitant]
     Indication: CHRONIC OBSTRUCTIVE PULMONARY DISEASE
  3. LAMICTAL [Concomitant]
     Dosage: 1 MG, UNK
  4. LEVOTHYROXINE SODIUM [Concomitant]
     Indication: HYPOTHYROIDISM
     Dosage: 50 MG, QD
  5. VALPROIC ACID [Concomitant]
     Indication: MYOCLONUS
     Dosage: 300 MG, BID
     Dates: start: 20081217
  6. CLOZAPINE [Suspect]
     Indication: SCHIZOPHRENIA
     Dosage: UNK
     Dates: start: 20081001
  7. LITHIUM CARBONATE [Concomitant]
     Indication: AFFECTIVE DISORDER
     Dosage: 600 MG, QD
     Route: 048
  8. NIFEDIPINE [Concomitant]
     Indication: HYPERTENSION
     Dosage: 20 MG, QD
     Route: 048
     Dates: start: 20081221

REACTIONS (8)
  - WHITE BLOOD CELL COUNT INCREASED [None]
  - ARTHRITIS [None]
  - EOSINOPHIL COUNT INCREASED [None]
  - MYOCLONUS [None]
  - CELLULITIS [None]
  - RENAL ATROPHY [None]
  - PNEUMONIA [None]
  - CENTRAL NERVOUS SYSTEM LESION [None]
